FAERS Safety Report 14202595 (Version 1)
Quarter: 2017Q4

REPORT INFORMATION
  Report Type: Other
  Country: GB (occurrence: CN)
  Receive Date: 20171118
  Receipt Date: 20171118
  Transmission Date: 20180321
  Serious: Yes (Life-Threatening, Other)
  Sender: FDA-Public Use
  Company Number: CN-INTERNATIONAL MEDICATION SYSTEMS, LIMITED-2034578

PATIENT
  Age: 3 Month
  Sex: Female

DRUGS (1)
  1. ATROPINE. [Suspect]
     Active Substance: ATROPINE
     Indication: BEZOLD-JARISCH REFLEX
     Route: 042

REACTIONS (1)
  - Drug ineffective [Unknown]
